FAERS Safety Report 13995466 (Version 2)
Quarter: 2017Q4

REPORT INFORMATION
  Report Type: Report from Study
  Country: None (occurrence: IE)
  Receive Date: 20170921
  Receipt Date: 20171218
  Transmission Date: 20180321
  Serious: Yes (Hospitalization)
  Sender: FDA-Public Use
  Company Number: IE-ABBVIE-17K-229-2034962-00

PATIENT
  Age: 52 Year
  Sex: Male

DRUGS (6)
  1. RIVAROXABAN [Concomitant]
     Active Substance: RIVAROXABAN
     Indication: PRODUCT USED FOR UNKNOWN INDICATION
     Route: 048
     Dates: start: 20160918, end: 2016
  2. HUMIRA [Suspect]
     Active Substance: ADALIMUMAB
     Route: 058
     Dates: end: 20160215
  3. HUMIRA [Suspect]
     Active Substance: ADALIMUMAB
     Route: 058
     Dates: start: 201707
  4. HUMIRA [Suspect]
     Active Substance: ADALIMUMAB
     Indication: PSORIASIS
     Dosage: INDUCTION DOSE
     Route: 058
     Dates: start: 20160108, end: 20160108
  5. HUMIRA [Suspect]
     Active Substance: ADALIMUMAB
     Dosage: WEEK 1
     Route: 058
     Dates: start: 20160115, end: 20160115
  6. AMIODARONE [Suspect]
     Active Substance: AMIODARONE
     Indication: HEART RATE INCREASED
     Route: 065
     Dates: start: 2016

REACTIONS (20)
  - Postoperative wound complication [Recovered/Resolved]
  - Hepatic cirrhosis [Recovered/Resolved]
  - Blood chloride decreased [Unknown]
  - Hepatitis [Recovered/Resolved]
  - Purulence [Recovered/Resolved with Sequelae]
  - Large intestine erosion [Unknown]
  - Cholecystitis infective [Recovered/Resolved]
  - Liver function test abnormal [Recovered/Resolved]
  - Biliary fistula [Recovered/Resolved with Sequelae]
  - Peritonitis [Unknown]
  - Neutrophil count increased [Recovered/Resolved]
  - Enterococcal infection [Unknown]
  - Intestinal dilatation [Recovered/Resolved]
  - Ventricular tachycardia [Recovered/Resolved]
  - Wound secretion [Recovered/Resolved]
  - White blood cell count increased [Recovered/Resolved]
  - Red blood cell count decreased [Unknown]
  - Bile duct stone [Recovered/Resolved]
  - Acute kidney injury [Recovered/Resolved]
  - Blood albumin decreased [Unknown]

NARRATIVE: CASE EVENT DATE: 2016
